FAERS Safety Report 23365230 (Version 1)
Quarter: 2024Q1

REPORT INFORMATION
  Report Type: Spontaneous
  Country: None (occurrence: US)
  Receive Date: 20240104
  Receipt Date: 20240104
  Transmission Date: 20240410
  Serious: No
  Sender: FDA-Public Use
  Company Number: US-STI Pharma LLC-2150124

PATIENT
  Age: 54 Year
  Sex: Male

DRUGS (6)
  1. ETHAMBUTOL HYDROCHLORIDE [Suspect]
     Active Substance: ETHAMBUTOL HYDROCHLORIDE
  2. RIFAMPIN [Concomitant]
     Active Substance: RIFAMPIN
  3. AMIKACIN [Concomitant]
     Active Substance: AMIKACIN
     Route: 042
  4. LINEZOLID [Concomitant]
     Active Substance: LINEZOLID
  5. LEVOFLOXACIN [Concomitant]
     Active Substance: LEVOFLOXACIN
  6. CYCLOSERINE [Concomitant]
     Active Substance: CYCLOSERINE

REACTIONS (6)
  - Abdominal pain [Unknown]
  - Encephalopathy [Unknown]
  - Septic shock [Unknown]
  - Hyperbilirubinaemia [Unknown]
  - Renal failure [Unknown]
  - Thrombocytopenia [Unknown]
